FAERS Safety Report 8637839 (Version 5)
Quarter: 2014Q1

REPORT INFORMATION
  Report Type: Report from Study
  Country: CA (occurrence: CA)
  Receive Date: 20120627
  Receipt Date: 20140323
  Transmission Date: 20141002
  Serious: Yes (Death, Hospitalization)
  Sender: FDA-Public Use
  Company Number: CA-BRISTOL-MYERS SQUIBB COMPANY-16692121

PATIENT
  Age: 73 Year
  Sex: Male
  Weight: 71 kg

DRUGS (26)
  1. YERVOY [Suspect]
     Indication: MALIGNANT MELANOMA
     Dosage: COURSE-2 LAST DOSE 06JUN12-203MG, 18JUL12-225MG
     Route: 042
     Dates: start: 20120516, end: 20120606
  2. MORPHINE SULFATE [Suspect]
  3. FLOVENT [Concomitant]
     Dates: start: 2004
  4. ZYLOPRIM [Concomitant]
     Dates: start: 2005
  5. HYDROCHLOROTHIAZIDE [Concomitant]
     Dates: start: 2008
  6. PERINDOPRIL [Concomitant]
     Dates: start: 2012
  7. NORVASC [Concomitant]
     Dates: start: 20120620
  8. PANTOLOC [Concomitant]
     Dosage: 1 DF= 40 UNIT NOS
     Dates: start: 20120620
  9. DILAUDID [Concomitant]
     Dates: start: 20120620
  10. COLACE [Concomitant]
     Dates: start: 201207, end: 201207
  11. SENOKOT [Concomitant]
     Dates: start: 201207, end: 201207
  12. HYDROMORPH CONTIN [Concomitant]
     Route: 048
     Dates: start: 20120709
  13. CIPROFLOXACIN [Concomitant]
     Dates: start: 20120722
  14. MAXERAN [Concomitant]
     Dates: start: 20120804, end: 20120808
  15. METOCLOPRAMIDE [Concomitant]
  16. DOCUSATE [Concomitant]
     Dosage: 1 DF= 100-200MG
  17. ENOXAPARIN [Concomitant]
     Dosage: 1 DF= 40 UNITS NOS
  18. TAZOCIN [Concomitant]
     Dosage: 1 DF= 3.375 QBL
  19. AMLODIPINE [Concomitant]
     Dosage: 1 DF= 10 UNITS NOS
  20. LACTULOSE [Concomitant]
  21. XYLOCAINE [Concomitant]
     Dates: start: 20120807
  22. SODIUM CHLORIDE [Concomitant]
     Dates: start: 20120808
  23. COVERSYL [Concomitant]
     Dates: start: 2012
  24. HALOPERIDOL [Concomitant]
     Dates: start: 20120806, end: 20120806
  25. OLANZAPINE [Concomitant]
     Dates: start: 20120807
  26. MIDAZOLAM [Concomitant]
     Dates: start: 20120809

REACTIONS (4)
  - Malignant neoplasm progression [Fatal]
  - Bacteraemia [Recovered/Resolved]
  - Colitis [Recovered/Resolved]
  - Cerebrovascular accident [Not Recovered/Not Resolved]
